FAERS Safety Report 7483181-5 (Version None)
Quarter: 2011Q2

REPORT INFORMATION
  Report Type: 
  Country: None (occurrence: None)
  Receive Date: 20110516
  Receipt Date: 20100705
  Transmission Date: 20111010
  Serious: Yes (Other)
  Sender: FDA-Public Use
  Company Number: DE-GENENTECH-318663

PATIENT
  Age: 76 Year
  Sex: Female

DRUGS (2)
  1. LUCENTIS [Suspect]
     Indication: AGE-RELATED MACULAR DEGENERATION
     Dosage: UNK
     Route: 031
     Dates: start: 20090216
  2. PAIN KILLER (UNK INGREDIENTS) [Concomitant]
     Indication: SCIATICA
     Dosage: UNK

REACTIONS (4)
  - SCIATICA [None]
  - PAIN [None]
  - VISUAL ACUITY REDUCED [None]
  - WRIST FRACTURE [None]
